FAERS Safety Report 25144871 (Version 2)
Quarter: 2025Q3

REPORT INFORMATION
  Report Type: Report from Study
  Country: US (occurrence: US)
  Receive Date: 20250401
  Receipt Date: 20250809
  Transmission Date: 20251021
  Serious: Yes (Other)
  Sender: ALEXION PHARMACEUTICALS
  Company Number: US-AstraZeneca-CH-00835911A

PATIENT
  Sex: Female

DRUGS (1)
  1. BENRALIZUMAB [Suspect]
     Active Substance: BENRALIZUMAB
     Route: 065

REACTIONS (11)
  - Dyspnoea [Unknown]
  - Asthma [Unknown]
  - Arthropathy [Unknown]
  - Blood pressure increased [Unknown]
  - Dysphonia [Unknown]
  - Weight increased [Unknown]
  - Depression [Unknown]
  - Headache [Unknown]
  - Fall [Unknown]
  - Mobility decreased [Unknown]
  - Bipolar disorder [Unknown]
